FAERS Safety Report 19745456 (Version 1)
Quarter: 2021Q3

REPORT INFORMATION
  Report Type: Spontaneous
  Country: CN (occurrence: CN)
  Receive Date: 20210825
  Receipt Date: 20210825
  Transmission Date: 20211014
  Serious: Yes (Other)
  Sender: FDA-Public Use
  Company Number: CN-PFIZER INC-202101050286

PATIENT
  Age: 33 Year
  Sex: Male
  Weight: 80 kg

DRUGS (5)
  1. LE JIA [Suspect]
     Active Substance: CALCIUM GLUCONATE\DEXTROSE\MAGNESIUM CHLORIDE\POTASSIUM CHLORIDE\SODIUM ACETATE\SODIUM CHLORIDE\SODIUM CITRATE
     Indication: RASH
     Dosage: 500.0 ML, 1X/DAY
     Route: 041
     Dates: start: 20210727, end: 20210727
  2. SOLU?MEDROL [Suspect]
     Active Substance: METHYLPREDNISOLONE SODIUM SUCCINATE
     Indication: RASH
     Dosage: 40.0 MG, 1X/DAY
     Route: 041
     Dates: start: 20210727, end: 20210727
  3. GLUCOSE [Suspect]
     Active Substance: DEXTROSE
     Indication: RASH
     Dosage: 100.0 ML, 1X/DAY
     Route: 041
     Dates: start: 20210727, end: 20210727
  4. CALCIUM GLUCONATE. [Suspect]
     Active Substance: CALCIUM GLUCONATE
     Indication: RASH
     Dosage: 1.0 G, 1X/DAY
     Route: 041
     Dates: start: 20210727, end: 20210727
  5. SODIUM CHLORIDE. [Suspect]
     Active Substance: SODIUM CHLORIDE
     Indication: RASH
     Dosage: 100.0 ML, 1X/DAY
     Route: 041
     Dates: start: 20210727, end: 20210727

REACTIONS (4)
  - Infusion related reaction [Recovering/Resolving]
  - Rash [Recovering/Resolving]
  - Temperature intolerance [Recovering/Resolving]
  - Pyrexia [Recovered/Resolved]

NARRATIVE: CASE EVENT DATE: 20210727
